FAERS Safety Report 18509625 (Version 2)
Quarter: 2020Q4

REPORT INFORMATION
  Report Type: Report from Study
  Country: FR (occurrence: FR)
  Receive Date: 20201117
  Receipt Date: 20201130
  Transmission Date: 20210114
  Serious: Yes (Hospitalization)
  Sender: FDA-Public Use
  Company Number: FR-BIOVITRUM-2020FR6360

PATIENT
  Age: 64 Year
  Sex: Female

DRUGS (3)
  1. TACROLIMUS. [Concomitant]
     Active Substance: TACROLIMUS
     Indication: RENAL TRANSPLANT
     Route: 048
     Dates: start: 20200412
  2. KINERET [Suspect]
     Active Substance: ANAKINRA
     Indication: COVID-19
     Dosage: 100 MG/ 0.67 ML
     Route: 042
     Dates: start: 20200414, end: 20200420
  3. KINERET [Suspect]
     Active Substance: ANAKINRA
     Route: 042
     Dates: start: 20200420, end: 20200421

REACTIONS (1)
  - Posterior reversible encephalopathy syndrome [Recovered/Resolved]

NARRATIVE: CASE EVENT DATE: 20200423
